FAERS Safety Report 8026582 (Version 2)
Quarter: 2014Q2

REPORT INFORMATION
  Report Type: Report from Study
  Country: US (occurrence: US)
  Receive Date: 20110708
  Receipt Date: 20140506
  Transmission Date: 20141212
  Serious: Yes (Hospitalization, Other)
  Sender: FDA-Public Use
  Company Number: US-ROCHE-787782

PATIENT
  Age: 66 Year
  Sex: Female

DRUGS (8)
  1. TRASTUZUMAB [Suspect]
     Indication: BREAST CANCER
     Route: 042
     Dates: start: 20110221
  2. LAPATINIB [Suspect]
     Indication: BREAST CANCER
     Route: 048
     Dates: start: 20110221
  3. CARBOPLATIN [Suspect]
     Indication: BREAST CANCER
     Dosage: FOR 6 DOSES
     Route: 042
     Dates: start: 20110221
  4. DOCETAXEL [Suspect]
     Indication: BREAST CANCER
     Route: 042
     Dates: start: 20110221
  5. VICODIN [Suspect]
     Indication: BREAST CANCER
     Route: 065
  6. AMBIEN [Suspect]
     Indication: BREAST CANCER
     Route: 065
  7. LOPERAMIDE [Concomitant]
  8. ONDANSETRON [Concomitant]
     Route: 065

REACTIONS (3)
  - Diarrhoea [Recovered/Resolved]
  - Dehydration [Recovered/Resolved]
  - Asthenia [Recovered/Resolved]
